FAERS Safety Report 15794241 (Version 1)
Quarter: 2019Q1

REPORT INFORMATION
  Report Type: Spontaneous
  Country: US (occurrence: US)
  Receive Date: 20190107
  Receipt Date: 20190107
  Transmission Date: 20190417
  Serious: Yes (Other)
  Sender: FDA-Public Use
  Company Number: US-GLAXOSMITHKLINE-US2019000760

PATIENT
  Age: 46 Year
  Sex: Female

DRUGS (1)
  1. NICORETTE [Suspect]
     Active Substance: NICOTINE
     Indication: SMOKING CESSATION THERAPY
     Dosage: 4 MG, UNK
     Route: 048
     Dates: start: 20190102, end: 20190102

REACTIONS (4)
  - Dysphagia [Unknown]
  - Oral pain [Unknown]
  - Wrong technique in product usage process [Unknown]
  - Angina bullosa haemorrhagica [Unknown]

NARRATIVE: CASE EVENT DATE: 20190102
